FAERS Safety Report 11933065 (Version 1)
Quarter: 2016Q1

REPORT INFORMATION
  Report Type: Spontaneous
  Country: US (occurrence: US)
  Receive Date: 20160121
  Receipt Date: 20160121
  Transmission Date: 20160526
  Serious: No
  Sender: FDA-Public Use
  Company Number: US-AMGEN-USASP2016005340

PATIENT
  Age: 50 Year
  Sex: Male

DRUGS (6)
  1. ENBREL [Suspect]
     Active Substance: ETANERCEPT
     Indication: PSORIATIC ARTHROPATHY
     Dosage: 50 MG, 2 TIMES/WK
     Route: 058
     Dates: start: 20151215
  2. FENOFIBRATE. [Concomitant]
     Active Substance: FENOFIBRATE
  3. ENBREL [Suspect]
     Active Substance: ETANERCEPT
     Indication: PSORIASIS
  4. PREDNISONE. [Concomitant]
     Active Substance: PREDNISONE
     Dosage: UNK
  5. COLCRYS [Concomitant]
     Active Substance: COLCHICINE
  6. ALLOPURINOL. [Concomitant]
     Active Substance: ALLOPURINOL

REACTIONS (1)
  - Injection site pain [Unknown]

NARRATIVE: CASE EVENT DATE: 201512
